FAERS Safety Report 6571674-4 (Version None)
Quarter: 2010Q1

REPORT INFORMATION
  Report Type: 
  Country: None (occurrence: None)
  Receive Date: 20100205
  Receipt Date: 20100201
  Transmission Date: 20100710
  Serious: Yes (Death)
  Sender: FDA-Public Use
  Company Number: PHHY2009CA31483

PATIENT
  Sex: Female

DRUGS (5)
  1. CLOZAPINE [Suspect]
     Indication: SCHIZOPHRENIA, PARANOID TYPE
     Dosage: 150 MG DAILY
  2. CLOZAPINE [Suspect]
     Dosage: 300 MG DAILY
     Dates: end: 20080107
  3. OLANZAPINE [Suspect]
     Dosage: UNK
     Dates: start: 20071114
  4. LEVOTHYROXINE SODIUM [Concomitant]
  5. CELEXA [Concomitant]

REACTIONS (28)
  - ABDOMINAL DISTENSION [None]
  - ABDOMINAL PAIN UPPER [None]
  - ABDOMINAL TENDERNESS [None]
  - ACUTE HEPATIC FAILURE [None]
  - ACUTE RESPIRATORY DISTRESS SYNDROME [None]
  - ASCITES [None]
  - BLOOD ALBUMIN DECREASED [None]
  - CHOLELITHIASIS [None]
  - CHOLESTASIS [None]
  - COAGULOPATHY [None]
  - DECREASED APPETITE [None]
  - ENCEPHALOPATHY [None]
  - HEPATIC FIBROSIS [None]
  - HEPATIC NECROSIS [None]
  - HEPATOTOXICITY [None]
  - HYPOTHERMIA [None]
  - INFLAMMATION [None]
  - INTERNATIONAL NORMALISED RATIO INCREASED [None]
  - JAUNDICE [None]
  - LIVER FUNCTION TEST ABNORMAL [None]
  - LIVER INJURY [None]
  - MULTI-ORGAN FAILURE [None]
  - NAUSEA [None]
  - OEDEMA PERIPHERAL [None]
  - RENAL IMPAIRMENT [None]
  - SOMNOLENCE [None]
  - THROMBOCYTOPENIA [None]
  - VOMITING [None]
